FAERS Safety Report 5734257-1 (Version None)
Quarter: 2008Q2

REPORT INFORMATION
  Report Type: 
  Country: None (occurrence: None)
  Receive Date: 20080512
  Receipt Date: 20080507
  Transmission Date: 20081010
  Serious: Yes (Other)
  Sender: FDA-Public Use
  Company Number: SE-JNJFOC-20080501143

PATIENT
  Age: 29 Year
  Sex: Female

DRUGS (3)
  1. CONCERTA [Suspect]
     Indication: ATTENTION DEFICIT/HYPERACTIVITY DISORDER
     Route: 048
  2. FLUOXETINE [Concomitant]
     Route: 065
  3. SLEEPING PILLS [Concomitant]
     Route: 048

REACTIONS (2)
  - MUSCLE TWITCHING [None]
  - SYNCOPE [None]
